FAERS Safety Report 19382061 (Version 1)
Quarter: 2021Q2

REPORT INFORMATION
  Report Type: Report from Study
  Country: US (occurrence: US)
  Receive Date: 20210607
  Receipt Date: 20210607
  Transmission Date: 20210717
  Serious: Yes (Hospitalization)
  Sender: FDA-Public Use
  Company Number: US-JNJFOC-20210558923

PATIENT
  Age: 53 Year
  Sex: Female

DRUGS (3)
  1. SPRAVATO [Suspect]
     Active Substance: ESKETAMINE
     Indication: DEPRESSION
     Dosage: 56 MG, TOTAL 2 DOSES
     Dates: start: 20210504, end: 20210506
  2. SPRAVATO [Suspect]
     Active Substance: ESKETAMINE
     Dates: start: 20210527, end: 20210527
  3. SPRAVATO [Suspect]
     Active Substance: ESKETAMINE
     Dosage: 84 MG, TOTAL 3 DOSES
     Dates: start: 20210511, end: 20210525

REACTIONS (2)
  - Chest pain [Unknown]
  - Dissociation [Unknown]

NARRATIVE: CASE EVENT DATE: 20210527
